FAERS Safety Report 5331203-X (Version None)
Quarter: 2007Q2

REPORT INFORMATION
  Report Type: 
  Country: None (occurrence: None)
  Receive Date: 20070522
  Receipt Date: 20070426
  Transmission Date: 20071010
  Serious: No
  Sender: FDA-Public Use
  Company Number: US-JNJFOC-20070406516

PATIENT
  Age: 64 Year
  Sex: Female

DRUGS (3)
  1. INVEGA [Suspect]
     Indication: SCHIZOPHRENIA
     Route: 048
  2. LAMICTAL [Concomitant]
     Route: 048
  3. EFFEXOR [Concomitant]
     Route: 048

REACTIONS (2)
  - AGITATION [None]
  - RESTLESSNESS [None]
